FAERS Safety Report 23492091 (Version 1)
Quarter: 2024Q1

REPORT INFORMATION
  Report Type: Spontaneous
  Country: US (occurrence: None)
  Receive Date: 20240207
  Receipt Date: 20240207
  Transmission Date: 20240410
  Serious: No
  Sender: FDA-Public Use
  Company Number: US-ROCHE-3283913

PATIENT
  Age: 26 Year
  Sex: Female
  Weight: 88 kg

DRUGS (14)
  1. XOLAIR [Suspect]
     Active Substance: OMALIZUMAB
     Indication: Urticaria
     Dosage: STRENGTH: 150 MG/ML
     Route: 058
     Dates: start: 202212
  2. XOLAIR [Suspect]
     Active Substance: OMALIZUMAB
  3. XOLAIR [Suspect]
     Active Substance: OMALIZUMAB
  4. XOLAIR [Suspect]
     Active Substance: OMALIZUMAB
     Route: 058
     Dates: start: 202301
  5. XOLAIR [Suspect]
     Active Substance: OMALIZUMAB
  6. XOLAIR [Suspect]
     Active Substance: OMALIZUMAB
  7. ALBUTEROL SULFATE [Concomitant]
     Active Substance: ALBUTEROL SULFATE
     Dosage: 90 MCG/ACTUATION IHAATION HFA AEROSOL INHALER, INHALER PUFFS BY INHALATION ROUTE EVERY 4 HOURS AS NE
     Dates: start: 20220908
  8. ALLEGRA ALLERGY [Concomitant]
     Active Substance: FEXOFENADINE HYDROCHLORIDE
     Route: 048
     Dates: start: 20220916
  9. AUVI-Q [Concomitant]
     Active Substance: EPINEPHRINE
     Dosage: 0.3 MG/ 0.3 ML, INJECT 0.3 ML (0.3 MG) ONCE AS NEEDED FOR ANAPHYLAXIS
     Route: 030
     Dates: start: 20220908
  10. BENADRYL [Concomitant]
     Active Substance: DIPHENHYDRAMINE HYDROCHLORIDE
     Route: 048
  11. EFFEXOR XR [Concomitant]
     Active Substance: VENLAFAXINE HYDROCHLORIDE
     Dosage: EXTENDED RELEASE 24 HR
     Route: 048
  12. FLONASE ALLERGY RELIEF [Concomitant]
     Active Substance: FLUTICASONE PROPIONATE
     Dosage: 50 MCG/ACTUATION NASAL SPRAY SUSPENSION, INHALE 1 PUFF BY NASAL ROUTE 2 TIMES A DAY
     Dates: start: 20220908
  13. PREDNISONE [Concomitant]
     Active Substance: PREDNISONE
     Dosage: TAKE 6 TABSX1DAY, 5TABSX1DAY, 4TABSX3DAYS, 3TABSX3DAYS, 2TABSX3DAYS, 1TABX4DAYS
     Route: 048
     Dates: start: 20220908
  14. SINGULAIR [Concomitant]
     Active Substance: MONTELUKAST SODIUM
     Dosage: TAKE 1 TABLET (10 MG) BY ORAL ROUTE ONCE DAILY IN THE EVENING
     Route: 048
     Dates: start: 20220908

REACTIONS (6)
  - Chest pain [Unknown]
  - Electrocardiogram abnormal [Unknown]
  - Pain [Unknown]
  - Feeling abnormal [Unknown]
  - Hypertension [Unknown]
  - Heart rate increased [Unknown]
